FAERS Safety Report 24216464 (Version 1)
Quarter: 2024Q3

REPORT INFORMATION
  Report Type: Spontaneous
  Country: CN (occurrence: CN)
  Receive Date: 20240816
  Receipt Date: 20240816
  Transmission Date: 20241017
  Serious: Yes (Hospitalization, Other)
  Sender: RANBAXY
  Company Number: CN-SUN PHARMACEUTICAL INDUSTRIES LTD-2024R1-461278

PATIENT
  Age: 43 Year
  Sex: Female

DRUGS (5)
  1. IMIPENEM AND CILASTATIN [Suspect]
     Active Substance: CILASTATIN SODIUM\IMIPENEM
     Indication: Pulmonary nocardiosis
     Dosage: 1 GRAM EVERY EIGHT HOURS
     Route: 065
     Dates: start: 2017
  2. SULFAMETHOXAZOLE\TRIMETHOPRIM [Suspect]
     Active Substance: SULFAMETHOXAZOLE\TRIMETHOPRIM
     Indication: Pulmonary nocardiosis
     Dosage: 0.96 GRAM FOUR TIMES DAILY
     Route: 048
     Dates: start: 2017
  3. LINEZOLID [Suspect]
     Active Substance: LINEZOLID
     Indication: Pulmonary nocardiosis
     Dosage: 600 MILLIGRAM, BID
     Route: 065
     Dates: start: 2017
  4. MINOCYCLINE [Suspect]
     Active Substance: MINOCYCLINE HYDROCHLORIDE
     Indication: Pulmonary nocardiosis
     Dosage: 50 MILLIGRAM, BID
     Route: 042
     Dates: start: 2017
  5. METHYLPREDNISOLONE [Concomitant]
     Active Substance: METHYLPREDNISOLONE
     Indication: Nephrotic syndrome
     Dosage: 4 MILLIGRAM, DAILY
     Route: 065

REACTIONS (7)
  - Cardiac arrest [Recovered/Resolved]
  - Coma [Recovered/Resolved]
  - Respiratory arrest [Recovered/Resolved]
  - Epilepsy [Recovered/Resolved]
  - Brain oedema [Recovered/Resolved]
  - Gastrointestinal disorder [Unknown]
  - Condition aggravated [Unknown]

NARRATIVE: CASE EVENT DATE: 20170415
